FAERS Safety Report 16871501 (Version 2)
Quarter: 2019Q4

REPORT INFORMATION
  Report Type: Spontaneous
  Country: HU (occurrence: HU)
  Receive Date: 20191001
  Receipt Date: 20191203
  Transmission Date: 20200122
  Serious: Yes (Other)
  Sender: FDA-Public Use
  Company Number: HU-AMGEN-HUNSP2019159085

PATIENT
  Age: 47 Year
  Sex: Female

DRUGS (5)
  1. PALBOCICLIB [Concomitant]
     Active Substance: PALBOCICLIB
     Dosage: 125 MILLIGRAM
  2. GOSERELIN [Concomitant]
     Active Substance: GOSERELIN
  3. PROLIA [Suspect]
     Active Substance: DENOSUMAB
     Indication: IMMUNE SYSTEM DISORDER
     Dosage: UNK UNK, Q6MO
     Route: 065
     Dates: start: 20161017
  4. TAMOXIFEN [Concomitant]
     Active Substance: TAMOXIFEN
  5. FULVESTRANT. [Concomitant]
     Active Substance: FULVESTRANT

REACTIONS (2)
  - Off label use [Unknown]
  - Breast cancer metastatic [Unknown]

NARRATIVE: CASE EVENT DATE: 20170706
